FAERS Safety Report 5679656-1 (Version None)
Quarter: 2008Q1

REPORT INFORMATION
  Report Type: 
  Country: None (occurrence: None)
  Receive Date: 20080325
  Receipt Date: 20080320
  Transmission Date: 20080703
  Serious: Yes (Hospitalization)
  Sender: FDA-Public Use
  Company Number: US-GILEAD-2008-0015581

PATIENT
  Sex: Female
  Weight: 87.168 kg

DRUGS (17)
  1. LETAIRIS [Suspect]
     Indication: PULMONARY HYPERTENSION
     Route: 048
     Dates: start: 20070928
  2. REVATIO [Concomitant]
     Route: 048
  3. REVATIO [Concomitant]
     Route: 048
  4. LASIX [Concomitant]
     Route: 048
  5. SPIRONOLACTONE [Concomitant]
     Route: 048
  6. BENICAR [Concomitant]
     Route: 048
  7. COUMADIN [Concomitant]
     Route: 048
  8. ALLOPURINOL [Concomitant]
     Route: 048
  9. ACTONEL [Concomitant]
     Route: 048
  10. CALCIUM [Concomitant]
     Route: 048
  11. CELEBREX [Concomitant]
     Route: 048
  12. ZOLOFT [Concomitant]
     Route: 048
  13. ZYRTEC [Concomitant]
     Route: 048
  14. FLONASE [Concomitant]
     Route: 055
  15. NEXIUM [Concomitant]
     Route: 048
  16. ZETIA [Concomitant]
     Route: 048
  17. COMPLETE MULTIVITAMIN [Concomitant]
     Route: 048

REACTIONS (2)
  - CEREBRAL HAEMORRHAGE [None]
  - HYPOCOAGULABLE STATE [None]
